FAERS Safety Report 6412925-6 (Version None)
Quarter: 2009Q4

REPORT INFORMATION
  Report Type: 
  Country: None (occurrence: None)
  Receive Date: 20091023
  Receipt Date: 20091009
  Transmission Date: 20100525
  Serious: Yes (Other)
  Sender: FDA-Public Use
  Company Number: PL-ROCHE-663291

PATIENT
  Age: 42 Year
  Sex: Male

DRUGS (1)
  1. SAQUINAVIR [Suspect]
     Route: 065

REACTIONS (1)
  - HODGKIN'S DISEASE [None]
